FAERS Safety Report 10994686 (Version 2)
Quarter: 2016Q2

REPORT INFORMATION
  Report Type: Spontaneous
  Country: BR (occurrence: BR)
  Receive Date: 20150407
  Receipt Date: 20160427
  Transmission Date: 20160815
  Serious: Yes (Death, Hospitalization)
  Sender: FDA-Public Use
  Company Number: BR-PFIZER INC-2015115257

PATIENT
  Age: 87 Year
  Sex: Female

DRUGS (8)
  1. LYRICA [Suspect]
     Active Substance: PREGABALIN
     Indication: SPINAL PAIN
     Dosage: UNK
     Route: 048
     Dates: end: 2014
  2. ARADOIS [Concomitant]
     Active Substance: LOSARTAN POTASSIUM
     Indication: HYPERTENSION
     Dosage: 2 TABLETS, DAILY
     Dates: start: 2012
  3. INSULIN [Concomitant]
     Active Substance: INSULIN NOS
     Indication: DIABETES MELLITUS
     Dosage: 35 IN THE MORNING AND 20 AT NIGHT (NO UNITS PROVIDED), 2X/DAY
     Dates: start: 2005
  4. METFORMIN [Concomitant]
     Active Substance: METFORMIN HYDROCHLORIDE
     Indication: DIABETES MELLITUS
     Dosage: 1 TABLET, 3X/DAY
  5. ANCORON [Concomitant]
     Active Substance: AMIODARONE HYDROCHLORIDE
     Indication: CARDIAC DISORDER
     Dosage: 1 TABLET, 2X/DAY
     Dates: start: 2010
  6. CONCOR [Concomitant]
     Active Substance: BISOPROLOL FUMARATE
     Indication: ARRHYTHMIA
     Dosage: 1 TABLET, IN THE MORNING
     Dates: start: 201309
  7. TREZOR [Concomitant]
     Active Substance: ROSUVASTATIN CALCIUM
     Indication: VENOUS OCCLUSION
     Dosage: 1 TABLET, AT NIGHT
     Dates: start: 2013
  8. PLAVIX [Concomitant]
     Active Substance: CLOPIDOGREL BISULFATE
     Indication: BLOOD PRESSURE ABNORMAL
     Dosage: 1 TABLET, IN THE MORNING
     Dates: start: 201309

REACTIONS (2)
  - Death [Fatal]
  - Cardiac disorder [Unknown]
